FAERS Safety Report 6764248-3 (Version None)
Quarter: 2010Q2

REPORT INFORMATION
  Report Type: 
  Country: None (occurrence: None)
  Receive Date: 20100608
  Receipt Date: 20100531
  Transmission Date: 20101027
  Serious: Yes (Other)
  Sender: FDA-Public Use
  Company Number: 1000013543

PATIENT
  Age: 88 Year
  Sex: Female
  Weight: 60 kg

DRUGS (7)
  1. MEMANTINE HCL [Suspect]
     Indication: DEMENTIA
     Dosage: 5 MG (5 MG, 1 IN 1 D), ORAL
     Route: 048
     Dates: start: 20100312, end: 20100324
  2. CIBADREX [Concomitant]
  3. VERAPAMIL [Concomitant]
  4. PLAVIX [Concomitant]
  5. NAFTILUX [Concomitant]
  6. PANTOPRAZOLE SODIUM [Concomitant]
  7. ZALDIAR [Concomitant]

REACTIONS (1)
  - DEPRESSION [None]
